FAERS Safety Report 8742411 (Version 2)
Quarter: 2012Q4

REPORT INFORMATION
  Report Type: 
  Country: CH (occurrence: CH)
  Receive Date: 20120824
  Receipt Date: 20121002
  Transmission Date: 20130627
  Serious: Yes (Other)
  Sender: FDA-Public Use
  Company Number: CH-PFIZER INC-2012205607

PATIENT
  Age: 65 Year
  Sex: Female
  Weight: 38 kg

DRUGS (11)
  1. VFEND [Suspect]
     Indication: BRONCHOPULMONARY ASPERGILLOSIS
     Dosage: 200 mg, 2x/day
     Route: 048
     Dates: start: 20120726
  2. ALDACTONE [Suspect]
     Dosage: 25 mg, 1x/day
     Route: 048
     Dates: end: 20120731
  3. PREDNISONE [Suspect]
     Dosage: 5 mg, 1x/day
     Route: 048
     Dates: end: 20120717
  4. PREDNISONE [Suspect]
     Dosage: 30 mg, 1x/day
     Route: 048
     Dates: start: 20120718, end: 20120726
  5. PREDNISONE [Suspect]
     Dosage: 5 mg, 1x/day
     Route: 048
     Dates: start: 20120727
  6. LIQUEMIN [Concomitant]
     Dosage: UNK
     Dates: start: 20120724
  7. ASPIRINE [Concomitant]
     Dosage: 100 mg, 1x/day
  8. MYFORTIC [Concomitant]
     Dosage: 360 mg, 2x/day
  9. PROGRAF [Concomitant]
     Dosage: 3.5 mg, UNK
     Route: 048
     Dates: end: 20120726
  10. PROGRAF [Concomitant]
     Dosage: 1 mg, 2x/day
     Route: 048
     Dates: start: 20120727
  11. ZITHROMAX [Concomitant]
     Dosage: 250 mg, 3 per 1 week
     Route: 048

REACTIONS (4)
  - Convulsion [Recovered/Resolved]
  - Hyponatraemia [Recovered/Resolved]
  - Adrenal insufficiency [Recovered/Resolved]
  - Hyperkalaemia [Recovered/Resolved]
